FAERS Safety Report 12270916 (Version 1)
Quarter: 2016Q2

REPORT INFORMATION
  Report Type: Spontaneous
  Country: US (occurrence: None)
  Receive Date: 20160414
  Receipt Date: 20160414
  Transmission Date: 20160815
  Serious: No
  Sender: FDA-Public Use
  Company Number: None

PATIENT
  Sex: Male

DRUGS (2)
  1. DURAGESIC [Suspect]
     Active Substance: FENTANYL
     Indication: SEIZURE
  2. DURAGESIC [Suspect]
     Active Substance: FENTANYL
     Indication: CRANIOCEREBRAL INJURY

REACTIONS (5)
  - Cardiac failure acute [None]
  - Hepatic failure [None]
  - Respiratory failure [None]
  - Renal failure [None]
  - Unresponsive to stimuli [None]

NARRATIVE: CASE EVENT DATE: 201410
